FAERS Safety Report 5179373-0 (Version None)
Quarter: 2006Q4

REPORT INFORMATION
  Report Type: 
  Country: None (occurrence: None)
  Receive Date: 20061219
  Receipt Date: 20060329
  Transmission Date: 20070319
  Serious: Yes (Hospitalization)
  Sender: FDA-Public Use
  Company Number: SE-ROCHE-442311

PATIENT
  Age: 52 Year
  Sex: Female
  Weight: 94 kg

DRUGS (5)
  1. INTERFERON ALFA-2A [Suspect]
     Indication: LYMPHOMA
     Route: 058
     Dates: start: 20060223, end: 20060306
  2. INTERFERON ALFA-2A [Suspect]
     Route: 058
     Dates: start: 20060308
  3. MABTHERA [Suspect]
     Indication: LYMPHOMA
     Route: 042
     Dates: start: 20060307
  4. OMEPRAZOLE [Concomitant]
  5. ZOLOFT [Concomitant]

REACTIONS (2)
  - ATRIAL FIBRILLATION [None]
  - PYREXIA [None]
